FAERS Safety Report 9441009 (Version 1)
Quarter: 2013Q3

REPORT INFORMATION
  Report Type: Spontaneous
  Country: US (occurrence: US)
  Receive Date: 20130805
  Receipt Date: 20130805
  Transmission Date: 20140515
  Serious: No
  Sender: FDA-Public Use
  Company Number: US-009507513-1308USA001912

PATIENT
  Age: 7 Year
  Sex: Female

DRUGS (1)
  1. CLARITIN ORAL SOLUTION [Suspect]
     Indication: HYPERSENSITIVITY
     Dosage: 10 MG, BID
     Dates: start: 20130730

REACTIONS (2)
  - Accidental overdose [Not Recovered/Not Resolved]
  - No adverse event [Unknown]
